FAERS Safety Report 4659659-6 (Version None)
Quarter: 2005Q2

REPORT INFORMATION
  Report Type: 
  Country: None (occurrence: None)
  Receive Date: 20050502
  Receipt Date: 20050104
  Transmission Date: 20051028
  Serious: Yes (Other)
  Sender: FDA-Public Use
  Company Number: 200417374US

PATIENT
  Sex: Female

DRUGS (2)
  1. KETEK [Suspect]
     Dosage: QD
     Dates: start: 20040801, end: 20040801
  2. KETEK [Suspect]
     Dosage: QD
     Dates: start: 20040924, end: 20040901

REACTIONS (5)
  - ACCOMMODATION DISORDER [None]
  - DIPLOPIA [None]
  - FATIGUE [None]
  - VISION BLURRED [None]
  - VISUAL DISTURBANCE [None]
